FAERS Safety Report 11678111 (Version 1)
Quarter: 2015Q4

REPORT INFORMATION
  Report Type: Spontaneous
  Country: US (occurrence: US)
  Receive Date: 20151027
  Receipt Date: 20151027
  Transmission Date: 20160304
  Serious: No
  Sender: FDA-Public Use
  Company Number: US-ELI_LILLY_AND_COMPANY-US201011000276

PATIENT
  Age: 60 Year
  Sex: Female

DRUGS (2)
  1. FORTEO [Suspect]
     Active Substance: TERIPARATIDE
     Indication: OSTEOPOROSIS
     Dosage: 20 UG, DAILY (1/D)
     Dates: start: 20100925
  2. ALTACE [Concomitant]
     Active Substance: RAMIPRIL

REACTIONS (16)
  - Tremor [Unknown]
  - Pain [Unknown]
  - Muscle spasms [Unknown]
  - Hyperhidrosis [Unknown]
  - Muscular weakness [Unknown]
  - Pain [Unknown]
  - Fibromyalgia [Unknown]
  - Palpitations [Not Recovered/Not Resolved]
  - Crying [Unknown]
  - Back pain [Not Recovered/Not Resolved]
  - Insomnia [Unknown]
  - Hypertension [Unknown]
  - Dizziness [Unknown]
  - Depression [Unknown]
  - Spinal compression fracture [Unknown]
  - Headache [Unknown]

NARRATIVE: CASE EVENT DATE: 20100925
